FAERS Safety Report 5840134-8 (Version None)
Quarter: 2008Q3

REPORT INFORMATION
  Report Type: 
  Country: None (occurrence: None)
  Receive Date: 20080811
  Receipt Date: 20080806
  Transmission Date: 20090109
  Serious: Yes (Death, Life-Threatening, Hospitalization, Other)
  Sender: FDA-Public Use
  Company Number: JP-ABBOTT-07P-087-0416987-00

PATIENT
  Sex: Male

DRUGS (20)
  1. KALETRA [Suspect]
     Indication: HIV INFECTION
     Route: 048
     Dates: start: 20061114, end: 20070224
  2. LAMIVUDINE + ZIDOVUDINE [Suspect]
     Indication: HIV INFECTION
     Route: 048
     Dates: start: 20061114, end: 20061211
  3. VALGANCICLOVIR HCL [Suspect]
     Indication: ENCEPHALITIS CYTOMEGALOVIRUS
     Route: 048
     Dates: start: 20061123, end: 20061208
  4. VALGANCICLOVIR HCL [Suspect]
     Route: 048
     Dates: start: 20061209, end: 20070414
  5. FOSCARNET SODIUM [Suspect]
     Indication: ENCEPHALITIS CYTOMEGALOVIRUS
     Route: 042
     Dates: start: 20061123, end: 20061208
  6. FOSCARNET SODIUM [Suspect]
     Route: 042
     Dates: start: 20061209, end: 20061230
  7. FOSCARNET SODIUM [Suspect]
     Route: 042
     Dates: start: 20070120, end: 20070201
  8. ABACAVIR SULFATE/LAMIVUDINE [Suspect]
     Indication: ENCEPHALITIS CYTOMEGALOVIRUS
     Route: 048
     Dates: start: 20061212, end: 20070319
  9. LAMIVUDINE + ZIDOVUDINE [Concomitant]
     Route: 048
     Dates: start: 20061114, end: 20061212
  10. FLUCONAZOLE [Concomitant]
     Indication: OESOPHAGEAL CANDIDIASIS
     Route: 048
     Dates: start: 20061108, end: 20061116
  11. FLUCONAZOLE [Concomitant]
     Route: 048
     Dates: start: 20070121, end: 20070127
  12. ABACAVIR SULFATE/LAMIVUDINE [Concomitant]
     Indication: DRUG USE FOR UNKNOWN INDICATION
     Route: 048
     Dates: start: 20061212, end: 20070319
  13. ATAZANAVIR SULFATE [Concomitant]
     Indication: DRUG USE FOR UNKNOWN INDICATION
     Route: 048
     Dates: start: 20070224, end: 20070319
  14. FAMOTIDINE [Concomitant]
     Indication: DRUG USE FOR UNKNOWN INDICATION
     Route: 048
     Dates: start: 20061116, end: 20070306
  15. AMPHOTERICIN B [Concomitant]
     Indication: DRUG USE FOR UNKNOWN INDICATION
     Route: 048
     Dates: start: 20061103, end: 20070220
  16. I.V. SOLUTIONS [Concomitant]
     Indication: DRUG USE FOR UNKNOWN INDICATION
     Route: 042
     Dates: start: 20061025, end: 20070220
  17. BACTRIM [Concomitant]
     Indication: ANTIFUNGAL PROPHYLAXIS
     Dates: start: 20061106
  18. AZITHROMYCIN [Concomitant]
     Indication: OPPORTUNISTIC INFECTION PROPHYLAXIS
     Route: 048
     Dates: start: 20061106, end: 20070414
  19. EPIRIZOLE [Concomitant]
     Indication: ANTIFUNGAL PROPHYLAXIS
     Route: 048
     Dates: start: 20061122, end: 20070414
  20. FAMOTIDINE [Concomitant]
     Indication: PROPHYLAXIS AGAINST GASTROINTESTINAL ULCER
     Route: 042
     Dates: start: 20070307, end: 20070414

REACTIONS (22)
  - ACUTE RESPIRATORY FAILURE [None]
  - ANAEMIA [None]
  - BONE MARROW FAILURE [None]
  - C-REACTIVE PROTEIN INCREASED [None]
  - CEREBRAL TOXOPLASMOSIS [None]
  - DISSEMINATED INTRAVASCULAR COAGULATION [None]
  - EATING DISORDER [None]
  - ENCEPHALITIS [None]
  - ENCEPHALITIS CYTOMEGALOVIRUS [None]
  - HAEMOGLOBIN DECREASED [None]
  - HYPERTHERMIA [None]
  - HYPOALBUMINAEMIA [None]
  - LOSS OF CONSCIOUSNESS [None]
  - MENINGISM [None]
  - MUSCULOSKELETAL STIFFNESS [None]
  - PANCYTOPENIA [None]
  - PLEURAL ADHESION [None]
  - PNEUMOTHORAX [None]
  - RESPIRATORY ARREST [None]
  - SEPSIS [None]
  - SHOCK [None]
  - STAPHYLOCOCCAL SEPSIS [None]
